FAERS Safety Report 13256620 (Version 1)
Quarter: 2017Q1

REPORT INFORMATION
  Report Type: Report from Study
  Country: IN (occurrence: IN)
  Receive Date: 20170221
  Receipt Date: 20170221
  Transmission Date: 20170428
  Serious: Yes (Hospitalization)
  Sender: FDA-Public Use
  Company Number: IN-INGENUS PHARMACEUTICALS NJ, LLC-ING201702-000076

PATIENT
  Sex: Female

DRUGS (1)
  1. CARISOPRODOL AND ASPIRIN [Suspect]
     Active Substance: ASPIRIN\CARISOPRODOL

REACTIONS (1)
  - Urethral haemorrhage [Unknown]
